FAERS Safety Report 8122163-7 (Version None)
Quarter: 2012Q1

REPORT INFORMATION
  Report Type: 
  Country: None (occurrence: None)
  Receive Date: 20120208
  Receipt Date: 20120127
  Transmission Date: 20120608
  Serious: Yes (Other)
  Sender: FDA-Public Use
  Company Number: US-ELI_LILLY_AND_COMPANY-US201201009171

PATIENT
  Sex: Female

DRUGS (1)
  1. FORTEO [Suspect]

REACTIONS (6)
  - MUSCLE INJURY [None]
  - SYSTEMIC LUPUS ERYTHEMATOSUS [None]
  - HEADACHE [None]
  - HIP ARTHROPLASTY [None]
  - NERVE INJURY [None]
  - HYPOAESTHESIA [None]
